FAERS Safety Report 6383563-9 (Version None)
Quarter: 2009Q3

REPORT INFORMATION
  Report Type: 
  Country: None (occurrence: None)
  Receive Date: 20090929
  Receipt Date: 20090929
  Transmission Date: 20100115
  Serious: Yes (Hospitalization)
  Sender: FDA-Public Use
  Company Number: None

PATIENT
  Age: 60 Year
  Sex: Male
  Weight: 94.1 kg

DRUGS (1)
  1. BUPROPION HCL [Suspect]
     Indication: DEPRESSION
     Dosage: 150 MG BID PO
     Route: 048
     Dates: start: 20080708, end: 20090609

REACTIONS (6)
  - BLOOD POTASSIUM DECREASED [None]
  - CEREBRAL DISORDER [None]
  - CONVULSION [None]
  - METABOLIC ACIDOSIS [None]
  - PULMONARY EMBOLISM [None]
  - SYNCOPE [None]
